FAERS Safety Report 10411677 (Version 1)
Quarter: 2014Q3

REPORT INFORMATION
  Report Type: Report from Study
  Country: ZA (occurrence: ZA)
  Receive Date: 20140827
  Receipt Date: 20140827
  Transmission Date: 20150326
  Serious: Yes (Death)
  Sender: FDA-Public Use
  Company Number: ZA-BAYER-2014-083579

PATIENT
  Sex: Female

DRUGS (5)
  1. AMITRIPTYLINE [Concomitant]
     Active Substance: AMITRIPTYLINE
  2. BETAFERON [Suspect]
     Active Substance: INTERFERON BETA-1B
     Dosage: 0.5
     Dates: start: 200908
  3. WARFARIN [Concomitant]
     Active Substance: WARFARIN
     Indication: CEREBROVASCULAR ACCIDENT PROPHYLAXIS
  4. GLUCOPHAGE [Concomitant]
     Active Substance: METFORMIN HYDROCHLORIDE
  5. CITALOPRAM [Concomitant]
     Active Substance: CITALOPRAM HYDROBROMIDE

REACTIONS (6)
  - Cerebral haemorrhage [Fatal]
  - Emotional disorder [None]
  - Poor quality sleep [None]
  - Hepatic failure [Fatal]
  - Fatigue [Recovering/Resolving]
  - Dizziness [None]

NARRATIVE: CASE EVENT DATE: 200910
